FAERS Safety Report 10217985 (Version 1)
Quarter: 2014Q2

REPORT INFORMATION
  Report Type: Spontaneous
  Country: US (occurrence: US)
  Receive Date: 20140605
  Receipt Date: 20140605
  Transmission Date: 20141212
  Serious: No
  Sender: FDA-Public Use
  Company Number: US-BIOGENIDEC-2014BI046191

PATIENT
  Age: 65 Year
  Sex: Male

DRUGS (4)
  1. TECFIDERA [Suspect]
     Indication: MULTIPLE SCLEROSIS
     Route: 048
     Dates: start: 20140303
  2. CLOPIDOGREL BISULFATE [Concomitant]
  3. METOPROLOL SUCCINATE ER [Concomitant]
  4. PANTOPRAZOLE SODIUM [Concomitant]

REACTIONS (2)
  - Oedema peripheral [Unknown]
  - Arthralgia [Unknown]
